FAERS Safety Report 4759196-4 (Version None)
Quarter: 2005Q3

REPORT INFORMATION
  Report Type: 
  Country: None (occurrence: None)
  Receive Date: 20050831
  Receipt Date: 20050811
  Transmission Date: 20060218
  Serious: Yes (Other)
  Sender: FDA-Public Use
  Company Number: GBS050818160

PATIENT
  Age: 78 Year
  Sex: Female

DRUGS (7)
  1. CYMBALTA [Suspect]
     Indication: DEPRESSION
     Dosage: 60 MG DAY
     Dates: start: 20050722, end: 20050727
  2. ATENOLOL [Concomitant]
  3. DOXAZOSIN [Concomitant]
  4. CANDESARTAN [Concomitant]
  5. RISPERIDONE [Concomitant]
  6. ASPIRIN [Concomitant]
  7. SIMVASTATIN [Concomitant]

REACTIONS (1)
  - HYPOTENSION [None]
